FAERS Safety Report 8973822 (Version 1)
Quarter: 2012Q4

REPORT INFORMATION
  Report Type: 
  Country: US (occurrence: US)
  Receive Date: 20121218
  Receipt Date: 20121218
  Transmission Date: 20130627
  Serious: No
  Sender: FDA-Public Use
  Company Number: US-BRISTOL-MYERS SQUIBB COMPANY-16865628

PATIENT
  Age: 53 Year
  Sex: Female

DRUGS (4)
  1. ABILIFY [Suspect]
     Indication: DEPRESSION
     Dosage: Duration: over 2yrs,3 weeks ago ran out of it
     Dates: start: 201006, end: 2012
  2. PROZAC [Concomitant]
  3. SIMVASTATIN [Concomitant]
  4. TRAZODONE HCL [Concomitant]

REACTIONS (4)
  - Tremor [Unknown]
  - Headache [Unknown]
  - Confusional state [Unknown]
  - Depression [Unknown]
